APPROVED DRUG PRODUCT: DOLOPHINE HYDROCHLORIDE
Active Ingredient: METHADONE HYDROCHLORIDE
Strength: 10MG/30ML
Dosage Form/Route: SYRUP;ORAL
Application: N006134 | Product #004
Applicant: HIKMA PHARMACEUTICALS USA INC
Approved: Approved Prior to Jan 1, 1982 | RLD: No | RS: No | Type: DISCN